FAERS Safety Report 16922373 (Version 2)
Quarter: 2019Q4

REPORT INFORMATION
  Report Type: Report from Study
  Country: CO (occurrence: CO)
  Receive Date: 20191016
  Receipt Date: 20191105
  Transmission Date: 20200122
  Serious: Yes (Other)
  Sender: FDA-Public Use
  Company Number: CO-AMGEN-COLSL2019169146

PATIENT
  Age: 61 Year
  Sex: Female

DRUGS (1)
  1. KYPROLIS [Suspect]
     Active Substance: CARFILZOMIB
     Indication: PLASMA CELL MYELOMA
     Dosage: 41 MILLIGRAM (OTHER)
     Route: 042
     Dates: start: 20180823, end: 20191022

REACTIONS (3)
  - Diarrhoea [Unknown]
  - Cough [Unknown]
  - Decreased immune responsiveness [Not Recovered/Not Resolved]

NARRATIVE: CASE EVENT DATE: 2019
